FAERS Safety Report 10168026 (Version 1)
Quarter: 2014Q2

REPORT INFORMATION
  Report Type: Spontaneous
  Country: JP (occurrence: JP)
  Receive Date: 20140512
  Receipt Date: 20140512
  Transmission Date: 20141212
  Serious: Yes (Other)
  Sender: FDA-Public Use
  Company Number: PHHY2014JP054847

PATIENT
  Age: 63 Year
  Sex: Male

DRUGS (4)
  1. OXALIPLATIN [Suspect]
     Indication: COLON CANCER
  2. LEUCOVORIN CALCIUM [Suspect]
     Indication: COLON CANCER
  3. 5-FLUOROURACIL [Suspect]
     Indication: COLON CANCER
  4. BEVACIZUMAB [Suspect]
     Indication: COLON CANCER

REACTIONS (1)
  - Interstitial lung disease [Recovering/Resolving]
